FAERS Safety Report 17946402 (Version 1)
Quarter: 2020Q2

REPORT INFORMATION
  Report Type: Spontaneous
  Country: JP (occurrence: JP)
  Receive Date: 20200626
  Receipt Date: 20200626
  Transmission Date: 20200714
  Serious: Yes (Hospitalization)
  Sender: FDA-Public Use
  Company Number: JP-TEVA-2020-JP-1793549

PATIENT
  Age: 60 Year
  Sex: Male

DRUGS (6)
  1. NEUPRO [Concomitant]
     Active Substance: ROTIGOTINE
  2. AZILECT [Suspect]
     Active Substance: RASAGILINE MESYLATE
     Indication: PARKINSON^S DISEASE
     Dosage: 1 MILLIGRAM DAILY;
     Route: 048
     Dates: start: 20190801
  3. LEVODOPA [Concomitant]
     Active Substance: LEVODOPA
  4. DOPS [Concomitant]
     Active Substance: DROXIDOPA
  5. ZONISAMIDE. [Concomitant]
     Active Substance: ZONISAMIDE
  6. NOURIAST [Concomitant]
     Active Substance: ISTRADEFYLLINE

REACTIONS (2)
  - Pneumonia aspiration [Not Recovered/Not Resolved]
  - Asthenia [Unknown]

NARRATIVE: CASE EVENT DATE: 20200510
